FAERS Safety Report 22972909 (Version 3)
Quarter: 2024Q1

REPORT INFORMATION
  Report Type: Spontaneous
  Country: US (occurrence: US)
  Receive Date: 20230922
  Receipt Date: 20240213
  Transmission Date: 20240410
  Serious: Yes (Other)
  Sender: FDA-Public Use
  Company Number: US-ELI_LILLY_AND_COMPANY-US202304009941

PATIENT
  Age: 74 Year
  Sex: Female

DRUGS (62)
  1. HUMALOG [Suspect]
     Active Substance: INSULIN LISPRO
     Indication: Type 1 diabetes mellitus
     Dosage: 2 U, PRN
     Route: 058
     Dates: start: 202209
  2. HUMALOG [Suspect]
     Active Substance: INSULIN LISPRO
     Indication: Type 1 diabetes mellitus
     Dosage: 2 U, PRN
     Route: 058
     Dates: start: 202209
  3. HUMALOG [Suspect]
     Active Substance: INSULIN LISPRO
     Indication: Type 1 diabetes mellitus
     Dosage: 2 U, PRN
     Route: 058
     Dates: start: 202209
  4. HUMALOG [Suspect]
     Active Substance: INSULIN LISPRO
     Indication: Type 1 diabetes mellitus
     Dosage: 2 U, PRN
     Route: 058
     Dates: start: 202209
  5. HUMALOG [Suspect]
     Active Substance: INSULIN LISPRO
     Indication: Type 1 diabetes mellitus
     Dosage: 2 U, PRN
     Route: 058
     Dates: start: 202209
  6. HUMALOG [Suspect]
     Active Substance: INSULIN LISPRO
     Indication: Type 1 diabetes mellitus
     Dosage: 2 U, PRN
     Route: 058
     Dates: start: 202209
  7. HUMALOG [Suspect]
     Active Substance: INSULIN LISPRO
     Indication: Type 1 diabetes mellitus
     Dosage: 2 U, PRN
     Route: 058
     Dates: start: 202209
  8. HUMALOG [Suspect]
     Active Substance: INSULIN LISPRO
     Indication: Type 1 diabetes mellitus
     Dosage: 2 U, PRN
     Route: 058
     Dates: start: 202209
  9. HUMALOG [Suspect]
     Active Substance: INSULIN LISPRO
     Indication: Type 1 diabetes mellitus
     Dosage: 2 U, PRN
     Route: 058
     Dates: start: 202209
  10. HUMALOG [Suspect]
     Active Substance: INSULIN LISPRO
     Dosage: 3 U, PRN (1 TO 3 UNITS ON SLIDING SCALE)
     Route: 058
     Dates: start: 202303
  11. HUMALOG [Suspect]
     Active Substance: INSULIN LISPRO
     Dosage: 3 U, PRN (1 TO 3 UNITS ON SLIDING SCALE)
     Route: 058
     Dates: start: 202303
  12. HUMALOG [Suspect]
     Active Substance: INSULIN LISPRO
     Dosage: 3 U, PRN (1 TO 3 UNITS ON SLIDING SCALE)
     Route: 058
     Dates: start: 202303
  13. HUMALOG [Suspect]
     Active Substance: INSULIN LISPRO
     Dosage: 3 U, PRN (1 TO 3 UNITS ON SLIDING SCALE)
     Route: 058
     Dates: start: 202303
  14. HUMALOG [Suspect]
     Active Substance: INSULIN LISPRO
     Dosage: 3 U, PRN (1 TO 3 UNITS ON SLIDING SCALE)
     Route: 058
     Dates: start: 202303
  15. HUMALOG [Suspect]
     Active Substance: INSULIN LISPRO
     Dosage: 3 U, PRN (1 TO 3 UNITS ON SLIDING SCALE)
     Route: 058
     Dates: start: 202303
  16. HUMALOG [Suspect]
     Active Substance: INSULIN LISPRO
     Dosage: 3 U, PRN (1 TO 3 UNITS ON SLIDING SCALE)
     Route: 058
     Dates: start: 202303
  17. HUMALOG [Suspect]
     Active Substance: INSULIN LISPRO
     Dosage: 3 U, PRN (1 TO 3 UNITS ON SLIDING SCALE)
     Route: 058
     Dates: start: 202303
  18. HUMALOG [Suspect]
     Active Substance: INSULIN LISPRO
     Dosage: 3 U, PRN (1 TO 3 UNITS ON SLIDING SCALE)
     Route: 058
     Dates: start: 202303
  19. HUMALOG [Suspect]
     Active Substance: INSULIN LISPRO
     Dosage: 3 U, PRN (1 TO 3 UNITS ON SLIDING SCALE)
     Route: 058
     Dates: start: 202303
  20. HUMALOG [Suspect]
     Active Substance: INSULIN LISPRO
     Dosage: 3 U, PRN (1 TO 3 UNITS ON SLIDING SCALE)
     Route: 058
     Dates: start: 202303
  21. HUMALOG [Suspect]
     Active Substance: INSULIN LISPRO
     Dosage: 3 U, PRN (1 TO 3 UNITS ON SLIDING SCALE)
     Route: 058
     Dates: start: 202303
  22. HUMALOG [Suspect]
     Active Substance: INSULIN LISPRO
     Dosage: 3 U, PRN (1 TO 3 UNITS ON SLIDING SCALE)
     Route: 058
     Dates: start: 202303
  23. HUMALOG [Suspect]
     Active Substance: INSULIN LISPRO
     Dosage: 3 U, PRN (1 TO 3 UNITS ON SLIDING SCALE)
     Route: 058
     Dates: start: 202303
  24. HUMALOG [Suspect]
     Active Substance: INSULIN LISPRO
     Dosage: 12 U, PRN, 3-12 U DAILY
     Route: 058
  25. HUMALOG [Suspect]
     Active Substance: INSULIN LISPRO
     Dosage: 12 U, PRN, 3-12 U DAILY
     Route: 058
  26. HUMALOG [Suspect]
     Active Substance: INSULIN LISPRO
     Dosage: 12 U, PRN, 3-12 U DAILY
     Route: 058
  27. HUMALOG [Suspect]
     Active Substance: INSULIN LISPRO
     Dosage: 12 U, PRN, 3-12 U DAILY
     Route: 058
  28. HUMALOG [Suspect]
     Active Substance: INSULIN LISPRO
     Dosage: 12 U, PRN, 3-12 U DAILY
     Route: 058
  29. HUMALOG [Suspect]
     Active Substance: INSULIN LISPRO
     Dosage: 12 U, PRN, 3-12 U DAILY
     Route: 058
  30. HUMALOG [Suspect]
     Active Substance: INSULIN LISPRO
     Dosage: 12 U, PRN, 3-12 U DAILY
     Route: 058
  31. HUMALOG [Suspect]
     Active Substance: INSULIN LISPRO
     Dosage: 12 U, PRN, 3-12 U DAILY
     Route: 058
  32. HUMALOG [Suspect]
     Active Substance: INSULIN LISPRO
     Dosage: 12 U, PRN, 3-12 U DAILY
     Route: 058
  33. HUMALOG [Suspect]
     Active Substance: INSULIN LISPRO
     Dosage: 12 U, PRN, 3-12 UNITS DAILY
     Route: 058
  34. HUMALOG [Suspect]
     Active Substance: INSULIN LISPRO
     Dosage: 12 U, PRN, 3-12 UNITS DAILY
     Route: 058
  35. HUMALOG [Suspect]
     Active Substance: INSULIN LISPRO
     Dosage: 12 U, PRN, 3-12 UNITS DAILY
     Route: 058
  36. HUMALOG [Suspect]
     Active Substance: INSULIN LISPRO
     Dosage: 12 U, PRN, 3-12 UNITS DAILY
     Route: 058
  37. HUMALOG [Suspect]
     Active Substance: INSULIN LISPRO
     Dosage: 2 U, PRN
     Route: 058
  38. HUMALOG [Suspect]
     Active Substance: INSULIN LISPRO
     Dosage: 2 U, PRN
     Route: 058
  39. HUMALOG [Suspect]
     Active Substance: INSULIN LISPRO
     Dosage: 2 U, PRN
     Route: 058
  40. HUMALOG [Suspect]
     Active Substance: INSULIN LISPRO
     Dosage: 2 U, PRN
     Route: 058
  41. HUMALOG [Suspect]
     Active Substance: INSULIN LISPRO
     Dosage: 2 U, DAILY
     Route: 058
  42. HUMALOG [Suspect]
     Active Substance: INSULIN LISPRO
     Dosage: 2 U, DAILY
     Route: 058
  43. HUMALOG [Suspect]
     Active Substance: INSULIN LISPRO
     Dosage: 2 U, DAILY
     Route: 058
  44. HUMALOG [Suspect]
     Active Substance: INSULIN LISPRO
     Dosage: 2 U, DAILY
     Route: 058
  45. HUMALOG [Suspect]
     Active Substance: INSULIN LISPRO
     Dosage: UNK UNK, DAILY
     Route: 058
  46. HUMALOG [Suspect]
     Active Substance: INSULIN LISPRO
     Dosage: UNK UNK, DAILY
     Route: 058
  47. HUMALOG [Suspect]
     Active Substance: INSULIN LISPRO
     Dosage: UNK UNK, DAILY
     Route: 058
  48. HUMALOG [Suspect]
     Active Substance: INSULIN LISPRO
     Dosage: UNK UNK, DAILY
     Route: 058
  49. HUMALOG [Suspect]
     Active Substance: INSULIN LISPRO
     Dosage: UNK UNK, DAILY
     Route: 058
  50. HUMALOG [Suspect]
     Active Substance: INSULIN LISPRO
     Dosage: UNK UNK, DAILY
     Route: 058
  51. HUMALOG [Suspect]
     Active Substance: INSULIN LISPRO
     Dosage: UNK UNK, DAILY
     Route: 058
  52. HUMALOG [Suspect]
     Active Substance: INSULIN LISPRO
     Dosage: UNK UNK, DAILY
     Route: 058
  53. HUMALOG [Suspect]
     Active Substance: INSULIN LISPRO
     Dosage: UNK UNK, DAILY
     Route: 058
  54. HUMALOG [Suspect]
     Active Substance: INSULIN LISPRO
     Dosage: 2 U, DAILY
     Route: 058
  55. HUMALOG [Suspect]
     Active Substance: INSULIN LISPRO
     Dosage: 2 U, DAILY
     Route: 058
  56. HUMALOG [Suspect]
     Active Substance: INSULIN LISPRO
     Dosage: 2 U, DAILY
     Route: 058
  57. HUMALOG [Suspect]
     Active Substance: INSULIN LISPRO
     Dosage: 2 U, DAILY
     Route: 058
  58. HUMALOG [Suspect]
     Active Substance: INSULIN LISPRO
     Dosage: 2 U, DAILY
     Route: 058
  59. HUMALOG [Suspect]
     Active Substance: INSULIN LISPRO
     Dosage: 2 U, DAILY
     Route: 058
  60. HUMALOG [Suspect]
     Active Substance: INSULIN LISPRO
     Dosage: 2 U, DAILY
     Route: 058
  61. LANTUS [Concomitant]
     Active Substance: INSULIN GLARGINE
     Indication: Type 1 diabetes mellitus
     Dosage: 6 U, DAILY
     Route: 065
     Dates: start: 2008
  62. LANTUS [Concomitant]
     Active Substance: INSULIN GLARGINE
     Dosage: 3 U, DAILY
     Route: 065

REACTIONS (7)
  - Blood glucose decreased [Unknown]
  - Pancreatitis chronic [Unknown]
  - Blood glucose decreased [Unknown]
  - Blood glucose increased [Unknown]
  - Blood insulin increased [Unknown]
  - Impaired insulin secretion [Unknown]
  - Blood glucose decreased [Unknown]

NARRATIVE: CASE EVENT DATE: 20160101
